FAERS Safety Report 7286407-6 (Version None)
Quarter: 2011Q1

REPORT INFORMATION
  Report Type: 
  Country: None (occurrence: None)
  Receive Date: 20110210
  Receipt Date: 20110203
  Transmission Date: 20110831
  Serious: Yes (Other)
  Sender: FDA-Public Use
  Company Number: US-CEPHALON-2011000573

PATIENT
  Sex: Male

DRUGS (3)
  1. FENTANYL CITRATE [Suspect]
     Indication: SYSTEMIC LUPUS ERYTHEMATOSUS
     Route: 002
     Dates: start: 20030101
  2. FENTANYL CITRATE [Suspect]
     Indication: BACK PAIN
  3. METHADONE [Concomitant]

REACTIONS (1)
  - DRUG PRESCRIBING ERROR [None]
